FAERS Safety Report 18380326 (Version 1)
Quarter: 2020Q4

REPORT INFORMATION
  Report Type: Spontaneous
  Country: PT (occurrence: PT)
  Receive Date: 20201013
  Receipt Date: 20201013
  Transmission Date: 20210114
  Serious: Yes (Other)
  Sender: FDA-Public Use
  Company Number: PT-009507513-2010PRT003258

PATIENT
  Age: 80 Year
  Sex: Female

DRUGS (1)
  1. KEYTRUDA [Suspect]
     Active Substance: PEMBROLIZUMAB
     Indication: LUNG ADENOCARCINOMA STAGE IV
     Dosage: 2MG/KG/DAY
     Dates: start: 20170419

REACTIONS (6)
  - Malignant neoplasm progression [Unknown]
  - Colectomy [Unknown]
  - Bladder hypertrophy [Unknown]
  - Nephropathy toxic [Unknown]
  - Therapy partial responder [Unknown]
  - Renal failure [Unknown]

NARRATIVE: CASE EVENT DATE: 2017
